FAERS Safety Report 7869537-7 (Version None)
Quarter: 2011Q4

REPORT INFORMATION
  Report Type: 
  Country: None (occurrence: None)
  Receive Date: 20111027
  Receipt Date: 20111013
  Transmission Date: 20120403
  Serious: Yes (Other)
  Sender: FDA-Public Use
  Company Number: 2011SGN00176

PATIENT
  Sex: Female
  Weight: 79.9 kg

DRUGS (2)
  1. NEXIUM [Concomitant]
  2. SGN-35 (CAC10-VCMMAE) INJECTION BRENTUXIMAB [Suspect]
     Indication: HODGKIN'S DISEASE
     Dosage: 1.8 MG/KG,Q21D
     Dates: start: 20110615, end: 20110817

REACTIONS (12)
  - QUALITY OF LIFE DECREASED [None]
  - GALLBLADDER ENLARGEMENT [None]
  - DYSPEPSIA [None]
  - CONSTIPATION [None]
  - WEIGHT DECREASED [None]
  - ABDOMINAL PAIN UPPER [None]
  - GASTRITIS [None]
  - NERVOUS SYSTEM DISORDER [None]
  - HEPATIC STEATOSIS [None]
  - DECREASED APPETITE [None]
  - THERAPEUTIC RESPONSE DECREASED [None]
  - GASTROINTESTINAL DISORDER [None]
